FAERS Safety Report 20069092 (Version 1)
Quarter: 2021Q4

REPORT INFORMATION
  Report Type: Spontaneous
  Country: GB (occurrence: GB)
  Receive Date: 20211115
  Receipt Date: 20211115
  Transmission Date: 20220303
  Serious: Yes (Disabling, Other)
  Sender: FDA-Public Use
  Company Number: None

PATIENT
  Age: 53 Year
  Sex: Female
  Weight: 83 kg

DRUGS (8)
  1. MEDROXYPROGESTERONE ACETATE [Suspect]
     Active Substance: MEDROXYPROGESTERONE ACETATE
     Dosage: 10 MG
     Dates: start: 20211104
  2. BISOPROLOL [Concomitant]
     Active Substance: BISOPROLOL
     Dosage: 1 DF, 2X/DAY (TAKE ONE BD)
     Dates: start: 20210721
  3. FLECAINIDE ACETATE [Concomitant]
     Active Substance: FLECAINIDE ACETATE
     Dosage: 1 DF, 2X/DAY (TAKE ONCE TWICE DAILY)
     Dates: start: 20210422
  4. HYPROMELLOSES [Concomitant]
     Active Substance: HYPROMELLOSES
     Dosage: 1 DF, AS NEEDED (ONE DROP QDS AS NEEDED)
     Dates: start: 20210629
  5. MEDROXYPROGESTERONE ACETATE [Concomitant]
     Active Substance: MEDROXYPROGESTERONE ACETATE
     Dosage: UNK, 1X/DAY (ONE DAILY - CAN INCREASE TO TWO DAILY)
     Dates: start: 20210816, end: 20210915
  6. RIVAROXABAN [Concomitant]
     Active Substance: RIVAROXABAN
     Dosage: UNK, 1X/DAY (TAKE ONE DAILY AT 6PM)
     Dates: start: 20201022
  7. SERTRALINE [Concomitant]
     Active Substance: SERTRALINE HYDROCHLORIDE
     Dosage: UNK, DAILY (1 DAILY)
     Dates: start: 20210422
  8. DILTIAZEM HYDROCHLORIDE [Concomitant]
     Active Substance: DILTIAZEM HYDROCHLORIDE
     Dosage: 1 DF, 3X/DAY (TAKE 1 TDS)
     Dates: start: 20210302, end: 20211101

REACTIONS (1)
  - Liver function test abnormal [Recovered/Resolved]

NARRATIVE: CASE EVENT DATE: 20211104
